FAERS Safety Report 8922823 (Version 1)
Quarter: 2012Q4

REPORT INFORMATION
  Report Type: Report from Study
  Country: TH (occurrence: TH)
  Receive Date: 20121123
  Receipt Date: 20121123
  Transmission Date: 20130627
  Serious: Yes (Hospitalization)
  Sender: FDA-Public Use
  Company Number: PHHO2012TH016374

PATIENT
  Age: 16 Year
  Sex: Male
  Weight: 50 kg

DRUGS (1)
  1. AFINITOR [Suspect]
     Indication: ASTROCYTOMA, LOW GRADE
     Dosage: 5 mg, QD
     Route: 048
     Dates: start: 20120727, end: 20121029

REACTIONS (1)
  - Ileal ulcer [Recovering/Resolving]
